FAERS Safety Report 20722075 (Version 2)
Quarter: 2022Q2

REPORT INFORMATION
  Report Type: Report from Study
  Country: US (occurrence: US)
  Receive Date: 20220418
  Receipt Date: 20220606
  Transmission Date: 20220721
  Serious: Yes (Other)
  Sender: FDA-Public Use
  Company Number: US-PAREXEL-2021-KAM-US003405

PATIENT
  Sex: Female
  Weight: 91 kg

DRUGS (34)
  1. GLASSIA [Suspect]
     Active Substance: .ALPHA.1-PROTEINASE INHIBITOR HUMAN
     Indication: Alpha-1 antitrypsin deficiency
     Dosage: 5700 MILLIGRAM, 1/WEEK
     Route: 042
  2. GLASSIA [Suspect]
     Active Substance: .ALPHA.1-PROTEINASE INHIBITOR HUMAN
     Indication: Alpha-1 antitrypsin deficiency
     Dosage: 5700 MILLIGRAM, 1/WEEK
     Route: 042
  3. GLASSIA [Suspect]
     Active Substance: .ALPHA.1-PROTEINASE INHIBITOR HUMAN
     Indication: Chronic obstructive pulmonary disease
     Dosage: 60 MILLIGRAM/KILOGRAM, Q3WEEKS
     Route: 042
     Dates: start: 20140501
  4. GLASSIA [Suspect]
     Active Substance: .ALPHA.1-PROTEINASE INHIBITOR HUMAN
     Indication: Chronic obstructive pulmonary disease
     Dosage: 60 MILLIGRAM/KILOGRAM, Q3WEEKS
     Route: 042
     Dates: start: 20140501
  5. GLASSIA [Suspect]
     Active Substance: .ALPHA.1-PROTEINASE INHIBITOR HUMAN
     Dosage: 60 MILLIGRAM/KILOGRAM, 1/WEEK
     Route: 042
     Dates: start: 20140412
  6. GLASSIA [Suspect]
     Active Substance: .ALPHA.1-PROTEINASE INHIBITOR HUMAN
     Dosage: 60 MILLIGRAM/KILOGRAM, 1/WEEK
     Route: 042
     Dates: start: 20140412
  7. GLASSIA [Suspect]
     Active Substance: .ALPHA.1-PROTEINASE INHIBITOR HUMAN
     Dosage: 60 MILLIGRAM/KILOGRAM, 1/WEEK
     Route: 042
  8. GLASSIA [Suspect]
     Active Substance: .ALPHA.1-PROTEINASE INHIBITOR HUMAN
     Dosage: 60 MILLIGRAM/KILOGRAM, 1/WEEK
     Route: 042
  9. CEPHALEXIN [Concomitant]
     Active Substance: CEPHALEXIN
  10. DIPHENHYDRAMINE [Concomitant]
     Active Substance: DIPHENHYDRAMINE
     Dosage: UNK
     Route: 065
  11. SODIUM CHLORIDE [Concomitant]
     Active Substance: SODIUM CHLORIDE
     Dosage: UNK
     Route: 065
  12. EPINEPHRINE [Concomitant]
     Active Substance: EPINEPHRINE
     Dosage: UNK, AUTO INJECTOR
     Route: 065
  13. OXYGEN [Concomitant]
     Active Substance: OXYGEN
     Dosage: UNK
     Route: 065
  14. OMEPRAZOLE [Concomitant]
     Active Substance: OMEPRAZOLE
     Dosage: UNK
     Route: 065
  15. FLUBLOK [Concomitant]
     Active Substance: INFLUENZA A VIRUS A/CALIFORNIA/7/2009 (H1N1) RECOMBINANT HEMAGGLUTININ ANTIGEN\INFLUENZA A VIRUS A/V
     Dosage: UNK
     Route: 065
  16. BUSPIRONE [Concomitant]
     Active Substance: BUSPIRONE HYDROCHLORIDE
     Dosage: UNK
     Route: 065
  17. FLUTICASONE [Concomitant]
     Active Substance: FLUTICASONE
     Dosage: UNK
     Route: 065
  18. XOPENEX [Concomitant]
     Active Substance: LEVALBUTEROL HYDROCHLORIDE
     Dosage: UNK
     Route: 065
  19. PROAIR HFA [Concomitant]
     Active Substance: ALBUTEROL SULFATE
     Dosage: UNK
     Route: 065
  20. METOPROLOL [Concomitant]
     Active Substance: METOPROLOL
     Dosage: UNK
     Route: 065
  21. SYMBICORT [Concomitant]
     Active Substance: BUDESONIDE\FORMOTEROL FUMARATE DIHYDRATE
     Dosage: UNK
     Route: 065
  22. TUDORZA PRESSAIR [Concomitant]
     Active Substance: ACLIDINIUM BROMIDE
     Dosage: UNK
     Route: 065
  23. METOPROLOL SUCCINATE [Concomitant]
     Active Substance: METOPROLOL SUCCINATE
     Route: 065
  24. PFIZER-BIONTECH COVID-19 VACCINE [Concomitant]
     Active Substance: TOZINAMERAN
  25. VITAMINS [Concomitant]
     Active Substance: VITAMINS
  26. VITAMIN D3 [Concomitant]
     Active Substance: CHOLECALCIFEROL
  27. FLUTICASONE PROPIONATE [Concomitant]
     Active Substance: FLUTICASONE PROPIONATE
  28. AZITHROMYCIN [Concomitant]
     Active Substance: AZITHROMYCIN
  29. FISH OIL [Concomitant]
     Active Substance: FISH OIL
  30. DIETARY SUPPLEMENT\GRAPE SEED EXTRACT [Concomitant]
     Active Substance: DIETARY SUPPLEMENT\GRAPE SEED EXTRACT
  31. RUTIN [Concomitant]
     Active Substance: RUTIN
  32. MUCINEX [Concomitant]
     Active Substance: GUAIFENESIN
  33. PROAIR HFA [Concomitant]
     Active Substance: ALBUTEROL SULFATE
  34. SPIRIVA RESPIMAT [Concomitant]
     Active Substance: TIOTROPIUM BROMIDE

REACTIONS (5)
  - Thyroid mass [Unknown]
  - Infusion site bruising [Unknown]
  - Respiratory tract infection [Unknown]
  - Productive cough [Unknown]
  - Discharge [Unknown]
